FAERS Safety Report 6791383-6 (Version None)
Quarter: 2010Q2

REPORT INFORMATION
  Report Type: 
  Country: None (occurrence: None)
  Receive Date: 20100624
  Receipt Date: 20100618
  Transmission Date: 20101027
  Serious: Yes (Life-Threatening, Hospitalization)
  Sender: FDA-Public Use
  Company Number: FR-WYE-G04008909

PATIENT
  Age: 61 Year
  Sex: Male

DRUGS (11)
  1. EFFEXOR XR [Suspect]
     Indication: DEPRESSION
     Dosage: 150 MG TOTAL DAILY
     Route: 048
     Dates: start: 20090324, end: 20090405
  2. EFFEXOR XR [Interacting]
     Route: 048
     Dates: start: 20090406, end: 20090504
  3. XATRAL [Concomitant]
     Dosage: UNKNOWN
  4. ZOLPIDEM [Concomitant]
     Dosage: UNKNOWN
  5. SERESTA [Concomitant]
     Dosage: UNKNOWN
  6. AMLOR [Concomitant]
     Dosage: UNKNOWN
  7. BIPRETERAX [Concomitant]
     Dosage: UNKNOWN
  8. KARDEGIC [Concomitant]
     Dosage: UNKNOWN
  9. TAHOR [Concomitant]
     Dosage: UNKNOWN
  10. TERALITHE [Interacting]
     Indication: BIPOLAR I DISORDER
     Dosage: UNKNOWN
     Route: 048
     Dates: start: 20090418, end: 20090423
  11. TERALITHE [Interacting]
     Route: 048
     Dates: start: 20090424, end: 20090504

REACTIONS (9)
  - CEREBELLAR SYNDROME [None]
  - DISSEMINATED INTRAVASCULAR COAGULATION [None]
  - DRUG INTERACTION [None]
  - MENTAL IMPAIRMENT [None]
  - MULTI-ORGAN FAILURE [None]
  - RENAL FAILURE ACUTE [None]
  - RHABDOMYOLYSIS [None]
  - SEROTONIN SYNDROME [None]
  - VENTRICULAR DYSFUNCTION [None]
